FAERS Safety Report 17948310 (Version 1)
Quarter: 2020Q2

REPORT INFORMATION
  Report Type: Spontaneous
  Country: US (occurrence: US)
  Receive Date: 20200626
  Receipt Date: 20200626
  Transmission Date: 20200714
  Serious: Yes (Other)
  Sender: FDA-Public Use
  Company Number: None

PATIENT
  Age: 59 Year
  Sex: Male
  Weight: 96.3 kg

DRUGS (2)
  1. REMDESIVIR. [Suspect]
     Active Substance: REMDESIVIR
     Indication: SARS-COV-2 TEST POSITIVE
     Dosage: ?          OTHER FREQUENCY:ONCE;?
     Route: 040
     Dates: start: 20200625, end: 20200625
  2. 0.9% SODIUM CHLORIDE 1L [Concomitant]
     Dates: start: 20200625

REACTIONS (3)
  - Rash erythematous [None]
  - Rash [None]
  - Red man syndrome [None]

NARRATIVE: CASE EVENT DATE: 20200625
